FAERS Safety Report 9506778 (Version 2)
Quarter: 2013Q4

REPORT INFORMATION
  Report Type: Report from Study
  Country: DE (occurrence: DE)
  Receive Date: 20130909
  Receipt Date: 20131002
  Transmission Date: 20140711
  Serious: Yes (Other)
  Sender: FDA-Public Use
  Company Number: DE-ROCHE-1269724

PATIENT
  Sex: Female
  Weight: 82 kg

DRUGS (1)
  1. RITUXIMAB [Suspect]
     Indication: B-CELL LYMPHOMA
     Route: 042
     Dates: start: 2011

REACTIONS (2)
  - Pulmonary fibrosis [Recovered/Resolved]
  - Pneumonia [Unknown]
